FAERS Safety Report 22611470 (Version 1)
Quarter: 2023Q2

REPORT INFORMATION
  Report Type: Spontaneous
  Country: JP (occurrence: JP)
  Receive Date: 20230616
  Receipt Date: 20230616
  Transmission Date: 20230722
  Serious: Yes (Other)
  Sender: FDA-Public Use
  Company Number: JP-ONO-2023JP015142

PATIENT

DRUGS (1)
  1. OPDIVO [Suspect]
     Active Substance: NIVOLUMAB
     Indication: Oesophageal carcinoma
     Route: 041

REACTIONS (10)
  - Aplasia pure red cell [Unknown]
  - Cholangitis [Not Recovered/Not Resolved]
  - Interstitial lung disease [Unknown]
  - Stevens-Johnson syndrome [Unknown]
  - Adrenal insufficiency [Unknown]
  - Rhabdomyolysis [Unknown]
  - Hepatitis [Unknown]
  - Rash [Unknown]
  - Arthritis [Unknown]
  - Off label use [Unknown]
